FAERS Safety Report 9293383 (Version 3)
Quarter: 2014Q1

REPORT INFORMATION
  Report Type: Spontaneous
  Country: US (occurrence: US)
  Receive Date: 20130516
  Receipt Date: 20140115
  Transmission Date: 20141002
  Serious: Yes (Other)
  Sender: FDA-Public Use
  Company Number: US-B.I. PHARMACEUTICALS,INC./RIDGEFIELD-2013-BI-13223BP

PATIENT
  Age: 74 Year
  Sex: Female

DRUGS (6)
  1. PRADAXA [Suspect]
     Indication: ATRIAL FIBRILLATION
     Dosage: 300 MG
     Route: 048
     Dates: start: 20111227, end: 20121211
  2. PRADAXA [Suspect]
     Indication: ATRIAL FIBRILLATION
  3. LASIX [Concomitant]
     Indication: HYPERTENSION
     Dosage: 60 MG
     Route: 048
  4. IMDUR [Concomitant]
     Indication: HYPERTENSION
     Route: 048
  5. 4 HEART MEDICATIONS [Concomitant]
  6. OTHER MEDICATIONS [Concomitant]

REACTIONS (11)
  - Transient ischaemic attack [Recovered/Resolved]
  - Blood creatinine increased [Unknown]
  - Glomerular filtration rate increased [Unknown]
  - Gastrointestinal disorder [Unknown]
  - Gastrointestinal obstruction [Unknown]
  - Constipation [Unknown]
  - Fatigue [Not Recovered/Not Resolved]
  - Asthenia [Not Recovered/Not Resolved]
  - Medication residue present [Recovered/Resolved]
  - Medication residue present [Recovered/Resolved]
  - Medication residue present [Recovered/Resolved]
